FAERS Safety Report 6228878-X (Version None)
Quarter: 2009Q2

REPORT INFORMATION
  Report Type: 
  Country: None (occurrence: None)
  Receive Date: 20090615
  Receipt Date: 20071001
  Transmission Date: 20091009
  Serious: Yes (Other)
  Sender: FDA-Public Use
  Company Number: US-ASTRAZENECA-2007UW09097

PATIENT
  Age: 16761 Day
  Sex: Female
  Weight: 121.1 kg

DRUGS (17)
  1. SEROQUEL [Suspect]
     Indication: BIPOLAR DISORDER
     Dosage: 200 MG, 25 MG
     Route: 048
     Dates: start: 20000101, end: 20070213
  2. SEROQUEL [Suspect]
     Indication: SLEEP DISORDER
     Dosage: 200 MG, 25 MG
     Route: 048
     Dates: start: 20000101, end: 20070213
  3. SEROQUEL [Suspect]
     Dosage: 25 MG - 600 MG
     Route: 048
     Dates: start: 20011116, end: 20070201
  4. SEROQUEL [Suspect]
     Dosage: 25 MG - 600 MG
     Route: 048
     Dates: start: 20011116, end: 20070201
  5. GEODON [Concomitant]
     Dates: start: 20040101, end: 20040101
  6. GEODON [Concomitant]
     Dosage: 40 MG IN THE MORNING AND 120 MG EVERY 7 PM.
     Route: 048
  7. HALDOL [Concomitant]
     Dates: start: 19990101, end: 19990101
  8. ZYPREXA [Concomitant]
     Indication: BIPOLAR DISORDER
     Dates: start: 20000101, end: 20050101
  9. PROZAC [Concomitant]
     Indication: DEPRESSION
     Dosage: 20 MG - 80 MG
     Route: 048
  10. NEURONTIN [Concomitant]
     Indication: MOOD SWINGS
     Dosage: 600 MG - 1800 MG
     Route: 048
  11. LIPITOR [Concomitant]
     Dosage: 20 MG- 40 MG
     Route: 048
  12. DIOVAN [Concomitant]
     Route: 048
  13. AMBIEN [Concomitant]
     Indication: INSOMNIA
     Route: 048
  14. LAMICTAL [Concomitant]
     Dosage: 25 MG- 75 MG
     Route: 048
  15. TRAZODONE HCL [Concomitant]
     Dosage: 100 MG - 200 MG
     Route: 048
  16. EXCEDRIN [Concomitant]
     Route: 048
  17. TEGRETOL [Concomitant]
     Dosage: 400 MG IN MORNING, 200 MG EVERY 3 PM AND 400 MG AT NIGHT
     Route: 048

REACTIONS (4)
  - BLOOD GLUCOSE INCREASED [None]
  - DIABETES MELLITUS [None]
  - NEUROPATHY PERIPHERAL [None]
  - TYPE 2 DIABETES MELLITUS [None]
